FAERS Safety Report 5317621-4 (Version None)
Quarter: 2007Q2

REPORT INFORMATION
  Report Type: 
  Country: None (occurrence: None)
  Receive Date: 20070507
  Receipt Date: 20070425
  Transmission Date: 20071010
  Serious: Yes (Other)
  Sender: FDA-Public Use
  Company Number: PHFR2007GB01444

PATIENT

DRUGS (1)
  1. LESCOL [Suspect]
     Route: 065

REACTIONS (2)
  - BLOOD CHOLESTEROL ABNORMAL [None]
  - MYOCARDIAL INFARCTION [None]
